FAERS Safety Report 21712909 (Version 2)
Quarter: 2022Q4

REPORT INFORMATION
  Report Type: Spontaneous
  Country: US (occurrence: US)
  Receive Date: 20221212
  Receipt Date: 20221219
  Transmission Date: 20230113
  Serious: No
  Sender: FDA-Public Use
  Company Number: US-SA-SAC20221209000260

PATIENT
  Sex: Male

DRUGS (1)
  1. DUPIXENT [Suspect]
     Active Substance: DUPILUMAB
     Indication: Dermatitis atopic
     Dosage: 300 MG, QOW
     Route: 058
     Dates: start: 202208

REACTIONS (6)
  - Burning sensation [Unknown]
  - Skin swelling [Unknown]
  - Eyelid skin dryness [Unknown]
  - Sensitive skin [Unknown]
  - Erythema [Unknown]
  - Rash macular [Unknown]
